FAERS Safety Report 5191714-7 (Version None)
Quarter: 2006Q4

REPORT INFORMATION
  Report Type: 
  Country: None (occurrence: None)
  Receive Date: 20061219
  Receipt Date: 20061204
  Transmission Date: 20070319
  Serious: Yes (Hospitalization, Other)
  Sender: FDA-Public Use
  Company Number: US-2006-032128

PATIENT
  Age: 50 Year
  Sex: Female
  Weight: 91 kg

DRUGS (12)
  1. BETASERON [Suspect]
     Indication: RELAPSING-REMITTING MULTIPLE SCLEROSIS
     Dosage: 8 MIU, EVERY 2D, SUBCUTANEOUS
     Route: 058
     Dates: start: 20020208
  2. TAGAMET [Concomitant]
  3. TRAMADOL HCL [Concomitant]
  4. ALLEGRA-D (FEXOFENADINE HYDROCHLORIDE) [Concomitant]
  5. SONATA [Concomitant]
  6. LEXAPRO [Concomitant]
  7. VITAMIN E [Concomitant]
  8. CORAL CALCIUM (CALCIUM) [Concomitant]
  9. VITAMIN D [Concomitant]
  10. MAGNESIUM (MAGNESIUM) [Concomitant]
  11. VITAMIN B KOMPLEX [Concomitant]
  12. HYDROCODONE W/APAP (HYDROCODONE) [Concomitant]

REACTIONS (5)
  - CHOLELITHIASIS [None]
  - CONDITION AGGRAVATED [None]
  - INJECTION SITE ERYTHEMA [None]
  - MULTIPLE SCLEROSIS [None]
  - NEPHROLITHIASIS [None]
